FAERS Safety Report 17235318 (Version 2)
Quarter: 2020Q2

REPORT INFORMATION
  Report Type: Spontaneous
  Country: US (occurrence: US)
  Receive Date: 20200106
  Receipt Date: 20200520
  Transmission Date: 20200713
  Serious: Yes (Other)
  Sender: FDA-Public Use
  Company Number: US-LUPIN PHARMACEUTICALS INC.-2019-08649

PATIENT
  Age: 44 Year
  Sex: Female

DRUGS (3)
  1. RISPERIDONE. [Suspect]
     Active Substance: RISPERIDONE
     Indication: INJURY
     Dosage: UNK
     Route: 065
  2. VALBENAZINE [Suspect]
     Active Substance: VALBENAZINE
     Indication: TARDIVE DYSKINESIA
     Dosage: 80 MILLIGRAM, QD
     Route: 065
  3. QUETIAPINE FUMARATE. [Suspect]
     Active Substance: QUETIAPINE FUMARATE
     Indication: INJURY
     Dosage: 100 MILLIGRAM, QD (100MG NIGHTLY)
     Route: 065

REACTIONS (2)
  - Tardive dyskinesia [Recovered/Resolved]
  - Parkinsonism [Not Recovered/Not Resolved]
